FAERS Safety Report 15761413 (Version 20)
Quarter: 2022Q4

REPORT INFORMATION
  Report Type: Spontaneous
  Country: FR (occurrence: FR)
  Receive Date: 20181226
  Receipt Date: 20221018
  Transmission Date: 20230113
  Serious: Yes (Hospitalization, Disabling, Other)
  Sender: FDA-Public Use
  Company Number: None

PATIENT
  Age: 28 Year
  Sex: Female
  Weight: 60 kg

DRUGS (65)
  1. ESTRADIOL [Suspect]
     Active Substance: ESTRADIOL
     Indication: Contraception
     Dosage: UNK
     Route: 065
     Dates: start: 20070528, end: 2009
  2. ESTRADIOL [Suspect]
     Active Substance: ESTRADIOL
     Dosage: 1 DF, QD, (1 TABLET/D FOR 21 DAYS PER MONTH)
     Route: 048
     Dates: start: 2008, end: 20170920
  3. ESTRADIOL [Suspect]
     Active Substance: ESTRADIOL
     Dosage: 1 DF, QD (1 TABLET/D FOR 21 DAYS PER MONTH)
     Route: 048
     Dates: start: 20090705, end: 20170920
  4. ESTRADIOL [Suspect]
     Active Substance: ESTRADIOL
     Dosage: UNK
     Route: 065
     Dates: start: 200907
  5. ESTRADIOL [Suspect]
     Active Substance: ESTRADIOL
     Dosage: 2 MILLIGRAM
     Route: 065
     Dates: start: 201312
  6. ESTRADIOL [Suspect]
     Active Substance: ESTRADIOL
     Dosage: 1 DOSAGE FORM(1 TABLET/D FOR 21 DAYS PER MONTH)
     Route: 048
  7. ESTRADIOL [Suspect]
     Active Substance: ESTRADIOL
     Dosage: 2 MILLIGRAM
     Route: 065
     Dates: start: 2007
  8. ESTRADIOL [Suspect]
     Active Substance: ESTRADIOL
     Dosage: UNK
     Route: 048
  9. CYPROTERONE [Suspect]
     Active Substance: CYPROTERONE
     Indication: Alopecia
     Dosage: 2.5 DOSAGE FORM, QD (HALF  TABLET/D FOR 21 DAYS PER MONTH)
     Route: 065
     Dates: start: 2007
  10. CYPROTERONE [Suspect]
     Active Substance: CYPROTERONE
     Indication: Acne
     Dosage: HALF TABLET QD FOR 21 DAYS PER MONTH)
     Route: 048
     Dates: start: 20070528, end: 2009
  11. CYPROTERONE [Suspect]
     Active Substance: CYPROTERONE
     Dosage: HALF  TABLETS /D FOR 21 DAYS PER MONTH
     Route: 048
     Dates: start: 2008
  12. CYPROTERONE [Suspect]
     Active Substance: CYPROTERONE
     Dosage: HALF TABLETS QD FOR 21 DAYS PER MONTH
     Route: 048
     Dates: start: 20090705, end: 20100820
  13. CYPROTERONE [Suspect]
     Active Substance: CYPROTERONE
     Dosage: 0.5 DOSAGE FORM, QD (HALF  TABLET QD)
     Route: 048
     Dates: start: 2008
  14. CYPROTERONE [Suspect]
     Active Substance: CYPROTERONE
     Dosage: QD (HALF  TABLET FOR 1 DAYS PER MONTH)
     Route: 065
     Dates: start: 20090705, end: 20100820
  15. CYPROTERONE [Suspect]
     Active Substance: CYPROTERONE
     Dosage: (HALF TABLET/D FOR 21 DAYS PER MONTH)
     Route: 048
     Dates: start: 20130816, end: 20140818
  16. CYPROTERONE [Suspect]
     Active Substance: CYPROTERONE
     Dosage: (HALF TABLET/D FOR 21 DAYS PER MONTH)
     Route: 048
     Dates: start: 20140818, end: 20170510
  17. CYPROTERONE [Suspect]
     Active Substance: CYPROTERONE
     Dosage: (HALF TABLET/D FOR 21 DAYS PER MONTH)
     Route: 048
     Dates: start: 20161124
  18. CYPROTERONE [Suspect]
     Active Substance: CYPROTERONE
     Dosage: (HALF  TABLET/D FOR 21 DAYS PER MONTH)
     Route: 048
     Dates: start: 20170510, end: 20170920
  19. CYPROTERONE [Suspect]
     Active Substance: CYPROTERONE
     Dosage: HALF TABLET QD FOR 21 DAYS PER MONTH
     Route: 048
     Dates: start: 20100715
  20. CYPROTERONE [Suspect]
     Active Substance: CYPROTERONE
     Dosage: HALF TABLET QD FOR 21 DAYS PER MONTH
     Route: 048
     Dates: start: 20101221, end: 20110705
  21. CYPROTERONE [Suspect]
     Active Substance: CYPROTERONE
     Dosage: HALF TABLET, QD FOR 21 DAYS PER MONTH
     Route: 048
     Dates: start: 20110705, end: 20110830
  22. CYPROTERONE [Suspect]
     Active Substance: CYPROTERONE
     Dosage: 0.5 DOSAGE FORM, QD
     Route: 048
     Dates: start: 20110830
  23. CYPROTERONE [Suspect]
     Active Substance: CYPROTERONE
     Dosage: 0.5 DOSAGE FORM, QD
     Route: 048
  24. CYPROTERONE [Suspect]
     Active Substance: CYPROTERONE
     Dosage: 0.5 DOSAGE FORM, QD
     Route: 048
  25. CYPROTERONE [Suspect]
     Active Substance: CYPROTERONE
     Dosage: 0.5 DOSAGE FORM, QD
     Route: 048
     Dates: start: 20130816
  26. CYPROTERONE [Suspect]
     Active Substance: CYPROTERONE
     Dosage: 0.5 DOSAGE FORM, QD
     Route: 065
  27. CYPROTERONE [Suspect]
     Active Substance: CYPROTERONE
     Dosage: 0.5 DOSAGE FORM, QD
     Route: 048
  28. CYPROTERONE [Suspect]
     Active Substance: CYPROTERONE
     Dosage: UNK
     Route: 065
  29. CYPROTERONE ACETATE\ETHINYL ESTRADIOL [Suspect]
     Active Substance: CYPROTERONE ACETATE\ETHINYL ESTRADIOL
     Indication: Alopecia
     Dosage: 2 MG BEFORE 28-MAY-2007
     Route: 065
  30. CYPROTERONE ACETATE\ETHINYL ESTRADIOL [Suspect]
     Active Substance: CYPROTERONE ACETATE\ETHINYL ESTRADIOL
     Indication: Acne
     Dosage: HALF TABLET QD, 21 DAYS PER MONTH
     Route: 048
     Dates: start: 20110705, end: 20110830
  31. CYPROTERONE ACETATE\ETHINYL ESTRADIOL [Suspect]
     Active Substance: CYPROTERONE ACETATE\ETHINYL ESTRADIOL
     Dosage: HALF TABLET/D FOR 21 DAYS PER MONTH
     Route: 048
     Dates: start: 20070528, end: 2009
  32. CYPROTERONE ACETATE\ETHINYL ESTRADIOL [Suspect]
     Active Substance: CYPROTERONE ACETATE\ETHINYL ESTRADIOL
     Dosage: QD, 21 DAYS PER MONTH
     Route: 048
     Dates: start: 2009, end: 20100715
  33. CYPROTERONE ACETATE\ETHINYL ESTRADIOL [Suspect]
     Active Substance: CYPROTERONE ACETATE\ETHINYL ESTRADIOL
     Dosage: HALF TABLET, QD, 21 DAYS PER MONTH
     Route: 048
     Dates: start: 20130816, end: 20140818
  34. CYPROTERONE ACETATE\ETHINYL ESTRADIOL [Suspect]
     Active Substance: CYPROTERONE ACETATE\ETHINYL ESTRADIOL
     Dosage: HALF TABLET QD, 21 DAYS PER MONTH
     Route: 048
     Dates: start: 20130816
  35. CYPROTERONE ACETATE\ETHINYL ESTRADIOL [Suspect]
     Active Substance: CYPROTERONE ACETATE\ETHINYL ESTRADIOL
     Dosage: HALF  TABLET QD; FOR 21DAYS PER MONTH
     Route: 048
     Dates: start: 20140818, end: 20170510
  36. CYPROTERONE ACETATE\ETHINYL ESTRADIOL [Suspect]
     Active Substance: CYPROTERONE ACETATE\ETHINYL ESTRADIOL
     Dosage: HALF  TABLET/D QD, 21 DAYS PER MONTH
     Route: 048
     Dates: start: 20110830, end: 20170510
  37. CYPROTERONE ACETATE\ETHINYL ESTRADIOL [Suspect]
     Active Substance: CYPROTERONE ACETATE\ETHINYL ESTRADIOL
     Dosage: HALF  TABLET/D FOR 21 DAYS PER MONTH
     Route: 048
     Dates: start: 20090705, end: 20100820
  38. CYPROTERONE ACETATE\ETHINYL ESTRADIOL [Suspect]
     Active Substance: CYPROTERONE ACETATE\ETHINYL ESTRADIOL
     Dosage: QD HALF  TABLET/D FOR 21 DAYS PER MONTH
     Route: 048
     Dates: start: 20130816, end: 20140818
  39. CYPROTERONE ACETATE\ETHINYL ESTRADIOL [Suspect]
     Active Substance: CYPROTERONE ACETATE\ETHINYL ESTRADIOL
     Dosage: QD, 21 DAYS PER MONTH
     Route: 048
     Dates: start: 20051221, end: 20110705
  40. CYPROTERONE ACETATE\ETHINYL ESTRADIOL [Suspect]
     Active Substance: CYPROTERONE ACETATE\ETHINYL ESTRADIOL
     Dosage: HALF  TABLET/D FOR 21 DAYS PER MONTH
     Route: 048
     Dates: start: 20170510, end: 20170920
  41. CYPROTERONE ACETATE\ETHINYL ESTRADIOL [Suspect]
     Active Substance: CYPROTERONE ACETATE\ETHINYL ESTRADIOL
     Dosage: 2 MG, CONT
     Route: 048
  42. CYPROTERONE ACETATE\ETHINYL ESTRADIOL [Suspect]
     Active Substance: CYPROTERONE ACETATE\ETHINYL ESTRADIOL
     Dosage: 2 MG, CONT
     Route: 048
     Dates: start: 1997
  43. CYPROTERONE ACETATE\ETHINYL ESTRADIOL [Suspect]
     Active Substance: CYPROTERONE ACETATE\ETHINYL ESTRADIOL
     Dosage: 2 MILLIGRAM (UNK, 2 MG)
     Route: 065
     Dates: start: 20161124
  44. CYPROTERONE ACETATE\ETHINYL ESTRADIOL [Suspect]
     Active Substance: CYPROTERONE ACETATE\ETHINYL ESTRADIOL
     Dosage: UNK
     Route: 065
  45. CYPROTERONE ACETATE [Suspect]
     Active Substance: CYPROTERONE ACETATE
     Indication: Alopecia
     Dosage: UNK
     Route: 065
     Dates: start: 2008, end: 20170920
  46. CYPROTERONE ACETATE [Suspect]
     Active Substance: CYPROTERONE ACETATE
     Indication: Acne
     Dosage: 0.5 DF, QD
     Route: 048
     Dates: start: 20170510, end: 20170920
  47. CYPROTERONE ACETATE [Suspect]
     Active Substance: CYPROTERONE ACETATE
     Dosage: 0.5 DF, QD
     Route: 048
  48. CYPROTERONE ACETATE [Suspect]
     Active Substance: CYPROTERONE ACETATE
     Dosage: 0.5 DF, QD
     Route: 048
     Dates: start: 20090705, end: 20190828
  49. CYPROTERONE ACETATE [Suspect]
     Active Substance: CYPROTERONE ACETATE
     Dosage: 0.5 DF, QD
     Route: 048
     Dates: end: 20130816
  50. CYPROTERONE ACETATE [Suspect]
     Active Substance: CYPROTERONE ACETATE
     Dosage: 0.5 DF, QD
     Route: 048
     Dates: end: 20110830
  51. CYPROTERONE ACETATE [Suspect]
     Active Substance: CYPROTERONE ACETATE
     Dosage: 0.5 DF, QD
     Route: 048
     Dates: start: 20130816, end: 20140818
  52. CYPROTERONE ACETATE [Suspect]
     Active Substance: CYPROTERONE ACETATE
     Dosage: 0.5 DF, QD
     Route: 048
     Dates: start: 20101221, end: 20110705
  53. CYPROTERONE ACETATE [Suspect]
     Active Substance: CYPROTERONE ACETATE
     Dosage: 0.5 DF, QD
     Route: 048
     Dates: end: 20161124
  54. CYPROTERONE ACETATE [Suspect]
     Active Substance: CYPROTERONE ACETATE
     Dosage: 0.5 DF, QD
     Route: 048
     Dates: end: 20110830
  55. CYPROTERONE ACETATE [Suspect]
     Active Substance: CYPROTERONE ACETATE
     Dosage: 0.5 DF, QD
     Route: 048
     Dates: start: 20130816, end: 20140818
  56. CYPROTERONE ACETATE [Suspect]
     Active Substance: CYPROTERONE ACETATE
     Dosage: 0.5 DF, QD
     Route: 048
     Dates: start: 20140818, end: 20170510
  57. CYPROTERONE ACETATE [Suspect]
     Active Substance: CYPROTERONE ACETATE
     Dosage: 0.5 DF, QD
     Route: 048
     Dates: end: 20170517
  58. CYPROTERONE ACETATE [Suspect]
     Active Substance: CYPROTERONE ACETATE
     Dosage: 0.5 DF, QD
     Route: 048
     Dates: end: 20161124
  59. CYPROTERONE ACETATE [Suspect]
     Active Substance: CYPROTERONE ACETATE
     Dosage: 0.5 DF, QD
     Route: 048
     Dates: start: 20110705, end: 20110830
  60. ESTRADIOL [Concomitant]
     Active Substance: ESTRADIOL
     Indication: Contraception
     Dosage: UNK
     Route: 065
     Dates: start: 2008, end: 20170920
  61. ESTRADIOL [Concomitant]
     Active Substance: ESTRADIOL
     Dosage: UNK
     Route: 065
     Dates: start: 201312
  62. ESTRADIOL [Concomitant]
     Active Substance: ESTRADIOL
     Dosage: 2 UNK
     Route: 065
     Dates: start: 2009
  63. ESTRADIOL [Concomitant]
     Active Substance: ESTRADIOL
     Dosage: 2 MILLIGRAM
     Route: 065
     Dates: start: 2007
  64. ESTRADIOL [Concomitant]
     Active Substance: ESTRADIOL
     Dosage: 2 MG, UNK
     Route: 065
  65. ESTRADIOL [Concomitant]
     Active Substance: ESTRADIOL
     Dosage: UNK
     Route: 065

REACTIONS (48)
  - Hemiplegia [Not Recovered/Not Resolved]
  - Hemiparaesthesia [Not Recovered/Not Resolved]
  - Cognitive disorder [Recovered/Resolved with Sequelae]
  - Muscular weakness [Not Recovered/Not Resolved]
  - Language disorder [Recovered/Resolved with Sequelae]
  - Eye haematoma [Unknown]
  - Disorientation [Unknown]
  - Coordination abnormal [Not Recovered/Not Resolved]
  - Gait disturbance [Not Recovered/Not Resolved]
  - Paraesthesia [Not Recovered/Not Resolved]
  - Diplopia [Not Recovered/Not Resolved]
  - Dysarthria [Not Recovered/Not Resolved]
  - Balance disorder [Recovered/Resolved with Sequelae]
  - Meningioma [Not Recovered/Not Resolved]
  - Nervous system disorder [Unknown]
  - Executive dysfunction [Recovered/Resolved with Sequelae]
  - Joint range of motion decreased [Recovered/Resolved with Sequelae]
  - Formication [Recovered/Resolved with Sequelae]
  - Disturbance in attention [Recovered/Resolved with Sequelae]
  - Hemiparesis [Unknown]
  - Mobility decreased [Recovered/Resolved with Sequelae]
  - Fatigue [Not Recovered/Not Resolved]
  - Asthenia [Recovered/Resolved with Sequelae]
  - Peripheral sensory neuropathy [Unknown]
  - Memory impairment [Recovered/Resolved with Sequelae]
  - Musculoskeletal disorder [Recovered/Resolved with Sequelae]
  - Facial paralysis [Not Recovered/Not Resolved]
  - Brain herniation [Unknown]
  - Partial seizures [Unknown]
  - Dyskinesia [Unknown]
  - Speech disorder [Recovered/Resolved with Sequelae]
  - Loss of personal independence in daily activities [Unknown]
  - Neck pain [Unknown]
  - Aphasia [Unknown]
  - Hypoaesthesia [Unknown]
  - Cerebral mass effect [Unknown]
  - Discomfort [Unknown]
  - Pain [Unknown]
  - Visual impairment [Unknown]
  - Weight increased [Not Recovered/Not Resolved]
  - Headache [Unknown]
  - Clumsiness [Unknown]
  - Disturbance in attention [Unknown]
  - Magnetic resonance imaging head abnormal [Unknown]
  - Off label use [Unknown]
  - Product use in unapproved indication [Unknown]
  - Product dose omission issue [Unknown]
  - Intentional product misuse [Unknown]

NARRATIVE: CASE EVENT DATE: 19970101
